FAERS Safety Report 20106581 (Version 2)
Quarter: 2021Q4

REPORT INFORMATION
  Report Type: Report from Study
  Country: GB (occurrence: GB)
  Receive Date: 20211124
  Receipt Date: 20211129
  Transmission Date: 20220303
  Serious: Yes (Life-Threatening, Hospitalization, Other)
  Sender: FDA-Public Use
  Company Number: GB-GSKJP-B0326939A

PATIENT

DRUGS (13)
  1. DEXAMETHASONE [Suspect]
     Active Substance: DEXAMETHASONE
     Indication: Nausea
     Dosage: 2 MG, TID
     Route: 048
     Dates: start: 20040311, end: 20040314
  2. CISPLATIN [Suspect]
     Active Substance: CISPLATIN
     Indication: Squamous cell carcinoma
     Dosage: 200 MG
     Route: 042
  3. CISPLATIN [Suspect]
     Active Substance: CISPLATIN
     Indication: Squamous cell carcinoma of head and neck
     Dosage: 100 MILLIGRAM/SQ. METER
     Route: 042
     Dates: start: 20040311
  4. DICLOFENAC [Suspect]
     Active Substance: DICLOFENAC
     Indication: Pain
     Dosage: 50 MG, TID
     Route: 048
  5. DICLOFENAC [Suspect]
     Active Substance: DICLOFENAC
     Dosage: 50 MG, TID
     Route: 048
     Dates: start: 20040304, end: 20040413
  6. DICLOFENAC [Suspect]
     Active Substance: DICLOFENAC
     Dosage: 50 MG, TID
     Route: 048
  7. DICLOFENAC [Suspect]
     Active Substance: DICLOFENAC
     Dosage: 50 MG, TID
     Route: 048
  8. DICLOFENAC [Suspect]
     Active Substance: DICLOFENAC
     Dosage: 50 MG, TID
     Route: 048
  9. DICLOFENAC [Suspect]
     Active Substance: DICLOFENAC
     Dosage: 50 MG, TID
     Route: 048
  10. LAPATINIB DITOSYLATE [Suspect]
     Active Substance: LAPATINIB DITOSYLATE
     Indication: Squamous cell carcinoma of head and neck
     Dosage: 500 MG
     Route: 048
     Dates: start: 20040304, end: 20040313
  11. TYKERB [Suspect]
     Active Substance: LAPATINIB DITOSYLATE
     Indication: Squamous cell carcinoma
     Dosage: 5000 MG
     Route: 048
     Dates: start: 20040304, end: 20040313
  12. TYKERB [Suspect]
     Active Substance: LAPATINIB DITOSYLATE
     Indication: Squamous cell carcinoma of head and neck
     Dosage: UNK
     Route: 065
  13. TYKERB [Suspect]
     Active Substance: LAPATINIB DITOSYLATE
     Dosage: 500 MG
     Route: 048
     Dates: start: 20040304, end: 20040313

REACTIONS (3)
  - Duodenal ulcer perforation [Recovered/Resolved]
  - Abdominal pain [Unknown]
  - Haematemesis [Unknown]

NARRATIVE: CASE EVENT DATE: 20040314
